FAERS Safety Report 13050929 (Version 3)
Quarter: 2017Q3

REPORT INFORMATION
  Report Type: Spontaneous
  Country: US (occurrence: US)
  Receive Date: 20161221
  Receipt Date: 20170801
  Transmission Date: 20171127
  Serious: Yes (Hospitalization)
  Sender: FDA-Public Use
  Company Number: US-PFIZER INC-2016390756

PATIENT
  Age: 77 Year
  Sex: Female

DRUGS (2)
  1. IBRANCE [Suspect]
     Active Substance: PALBOCICLIB
     Indication: BREAST CANCER FEMALE
     Dosage: 75 MG, UNK
     Dates: start: 20160622
  2. IBRANCE [Suspect]
     Active Substance: PALBOCICLIB
     Dosage: 75 MG, CYCLIC (DAILY, DAYS 1-21 OFF 7 DAYS)
     Route: 048
     Dates: start: 20161201

REACTIONS (2)
  - White blood cell count decreased [Unknown]
  - Heart rate abnormal [Unknown]

NARRATIVE: CASE EVENT DATE: 20161127
